FAERS Safety Report 14361426 (Version 1)
Quarter: 2018Q1

REPORT INFORMATION
  Report Type: Report from Study
  Country: FR (occurrence: FR)
  Receive Date: 20180108
  Receipt Date: 20180108
  Transmission Date: 20180509
  Serious: Yes (Other)
  Sender: FDA-Public Use
  Company Number: FR-AXELLIA-001253

PATIENT
  Age: 70 Year
  Sex: Male
  Weight: 60 kg

DRUGS (6)
  1. CYTARABINE/CYTARABINE HYDROCHLORIDE/CYTARABINE OCFOSFATE [Concomitant]
     Indication: ACUTE MYELOID LEUKAEMIA
     Dosage: 366 MG, CYCLIC (366 MG/DAY FROM DAY 1 TO DAY 7)
     Dates: start: 20161205
  2. ZELITREX [Concomitant]
     Active Substance: VALACYCLOVIR HYDROCHLORIDE
     Dosage: 500 MG, 2X/DAY
  3. VANCOMYCIN [Suspect]
     Active Substance: VANCOMYCIN
     Indication: PRODUCT USED FOR UNKNOWN INDICATION
  4. TRIFLUCAN [Concomitant]
     Active Substance: FLUCONAZOLE
     Dosage: 400 MG, DAILY
  5. MYLOTARG [Suspect]
     Active Substance: GEMTUZUMAB OZOGAMICIN
     Indication: ACUTE MYELOID LEUKAEMIA
     Dosage: 5 MG, CYCLIC (5 MG/DAY AT DAY 1, DAY 4 AND DAY 7)
     Route: 042
     Dates: start: 20161205
  6. DAUNORUBICIN [Concomitant]
     Active Substance: DAUNORUBICIN
     Indication: ACUTE MYELOID LEUKAEMIA
     Dosage: 109 MG,CYCLIC(109 MG/DAY AT DAY1,DAY2 AND DAY3)
     Dates: start: 20161205

REACTIONS (4)
  - Blood creatinine increased [Unknown]
  - Renal impairment [Recovering/Resolving]
  - Urinary retention [Recovering/Resolving]
  - Haematuria [Recovering/Resolving]
